FAERS Safety Report 8078208-6 (Version None)
Quarter: 2012Q1

REPORT INFORMATION
  Report Type: 
  Country: None (occurrence: None)
  Receive Date: 20120127
  Receipt Date: 20110127
  Transmission Date: 20120608
  Serious: No
  Sender: FDA-Public Use
  Company Number: US-ABBOTT-10P-163-0691548-00

PATIENT
  Age: 51 Year
  Sex: Male

DRUGS (14)
  1. GABAPENTIN [Concomitant]
     Indication: ANGIOPATHY
  2. PAMELOR [Concomitant]
     Indication: NEURALGIA
  3. CARDURA [Concomitant]
     Indication: PROSTATIC DISORDER
  4. NORCO [Concomitant]
     Indication: PAIN
  5. CIPROFLOXACIN [Concomitant]
     Indication: CROHN'S DISEASE
  6. IMURAN [Concomitant]
     Indication: CROHN'S DISEASE
  7. LUNESTA [Concomitant]
     Indication: PRODUCT USED FOR UNKNOWN INDICATION
     Dosage: AT BEDTIME
  8. HUMIRA [Suspect]
     Indication: CROHN'S DISEASE
     Dates: start: 20091101
  9. ASACOL [Concomitant]
     Indication: CROHN'S DISEASE
  10. NORCO [Concomitant]
     Indication: CROHN'S DISEASE
     Dosage: 7.5/325MG, 2 TABS THREE TIMES DAILY AS NEEDED
  11. FOLIC ACID [Concomitant]
     Indication: VASCULAR INSUFFICIENCY
  12. PAMELOR [Concomitant]
     Indication: PAIN IN EXTREMITY
  13. CARDURA [Concomitant]
     Indication: URINARY TRACT DISORDER
  14. ZOLOFT [Concomitant]
     Indication: DEPRESSION

REACTIONS (4)
  - NEEDLE ISSUE [None]
  - DEVICE MALFUNCTION [None]
  - INJECTION SITE HAEMORRHAGE [None]
  - DRUG DOSE OMISSION [None]
